FAERS Safety Report 11088659 (Version 4)
Quarter: 2015Q4

REPORT INFORMATION
  Report Type: Report from Study
  Country: US (occurrence: US)
  Receive Date: 20150504
  Receipt Date: 20151030
  Transmission Date: 20160304
  Serious: Yes (Hospitalization, Other)
  Sender: FDA-Public Use
  Company Number: US-ACTELION-A-US2015-117118

PATIENT
  Age: 79 Year
  Sex: Female

DRUGS (3)
  1. TRACLEER [Suspect]
     Active Substance: BOSENTAN
     Indication: PULMONARY ARTERIAL HYPERTENSION
     Dosage: UNK
     Route: 048
  2. RIOCIGUAT [Concomitant]
     Active Substance: RIOCIGUAT
  3. COUMADIN [Concomitant]
     Active Substance: WARFARIN SODIUM

REACTIONS (5)
  - Heart valve incompetence [Unknown]
  - Cardiac pacemaker insertion [Unknown]
  - Dyspnoea exertional [Unknown]
  - Dizziness [Unknown]
  - Presyncope [Unknown]
